FAERS Safety Report 12209551 (Version 2)
Quarter: 2016Q3

REPORT INFORMATION
  Report Type: Report from Study
  Country: CA (occurrence: CA)
  Receive Date: 20160324
  Receipt Date: 20160721
  Transmission Date: 20161109
  Serious: Yes (Other)
  Sender: FDA-Public Use
  Company Number: CA-ROCHE-1235725

PATIENT
  Sex: Male

DRUGS (8)
  1. NEUPOGEN [Suspect]
     Active Substance: FILGRASTIM
     Indication: PRODUCT USED FOR UNKNOWN INDICATION
     Route: 065
  2. PLAQUENIL [Concomitant]
     Active Substance: HYDROXYCHLOROQUINE SULFATE
  3. ACETAMINOPHEN. [Concomitant]
     Active Substance: ACETAMINOPHEN
     Indication: PREMEDICATION
     Route: 048
     Dates: start: 20110411
  4. RITUXAN [Suspect]
     Active Substance: RITUXIMAB
     Indication: VASCULITIS
     Dosage: MOST RECENT DOSE 12/DEC/2012
     Route: 042
     Dates: start: 20110411
  5. RITUXAN [Suspect]
     Active Substance: RITUXIMAB
     Indication: OFF LABEL USE
  6. METHOTREXATE. [Concomitant]
     Active Substance: METHOTREXATE
     Route: 065
  7. DIPHENHYDRAMINE HCL [Concomitant]
     Active Substance: DIPHENHYDRAMINE HYDROCHLORIDE
     Indication: PREMEDICATION
     Route: 048
     Dates: start: 20110411
  8. METHYLPREDNISOLONE. [Concomitant]
     Active Substance: METHYLPREDNISOLONE
     Indication: PREMEDICATION
     Route: 042
     Dates: start: 20110411

REACTIONS (5)
  - White blood cell count decreased [Not Recovered/Not Resolved]
  - Renal pain [Not Recovered/Not Resolved]
  - Back pain [Not Recovered/Not Resolved]
  - Neutropenia [Recovered/Resolved]
  - Neutrophil count decreased [Unknown]

NARRATIVE: CASE EVENT DATE: 2012
